FAERS Safety Report 5225031-3 (Version None)
Quarter: 2007Q1

REPORT INFORMATION
  Report Type: 
  Country: None (occurrence: None)
  Receive Date: 20070131
  Receipt Date: 20070129
  Transmission Date: 20070707
  Serious: Yes (Other)
  Sender: FDA-Public Use
  Company Number: US-GLAXOSMITHKLINE-A0637385A

PATIENT
  Age: 78 Year
  Sex: Male

DRUGS (9)
  1. AVANDIA [Suspect]
     Dosage: 8MG PER DAY
     Route: 048
     Dates: start: 20050101, end: 20070127
  2. GLYBURIDE [Concomitant]
  3. METFORMIN HCL [Concomitant]
  4. AVAPRO [Concomitant]
  5. LORAZEPAM [Concomitant]
  6. VERAPAMIL [Concomitant]
  7. HCT [Concomitant]
  8. ALLOPURINOL SODIUM [Concomitant]
  9. IMIPRIN [Concomitant]

REACTIONS (8)
  - DIZZINESS [None]
  - FATIGUE [None]
  - HYPOGLYCAEMIC SEIZURE [None]
  - JOINT SWELLING [None]
  - THERAPEUTIC RESPONSE UNEXPECTED [None]
  - VISUAL DISTURBANCE [None]
  - WEIGHT INCREASED [None]
  - WEIGHT LOSS POOR [None]
